FAERS Safety Report 19911273 (Version 1)
Quarter: 2021Q3

REPORT INFORMATION
  Report Type: Spontaneous
  Country: US (occurrence: US)
  Receive Date: 20210930
  Receipt Date: 20210930
  Transmission Date: 20211014
  Serious: Yes (Other)
  Sender: FDA-Public Use
  Company Number: None

PATIENT
  Age: 64 Year
  Sex: Female
  Weight: 71.4 kg

DRUGS (1)
  1. ABILIFY [Suspect]
     Active Substance: ARIPIPRAZOLE
     Indication: DELUSIONAL DISORDER, UNSPECIFIED TYPE
     Dosage: START DATE OF THERAPY: 10/29/2015
     Route: 048
     Dates: start: 20151015

REACTIONS (2)
  - Paranoia [None]
  - Condition aggravated [None]

NARRATIVE: CASE EVENT DATE: 201509
